FAERS Safety Report 7719844-3 (Version None)
Quarter: 2011Q3

REPORT INFORMATION
  Report Type: 
  Country: None (occurrence: None)
  Receive Date: 20110831
  Receipt Date: 20110819
  Transmission Date: 20111222
  Serious: No
  Sender: FDA-Public Use
  Company Number: US-BIOGENIDEC-2011BI032087

PATIENT
  Age: 41 Year
  Sex: Female

DRUGS (1)
  1. TYSABRI [Suspect]
     Indication: MULTIPLE SCLEROSIS
     Route: 042
     Dates: start: 20101001

REACTIONS (6)
  - UTERINE LEIOMYOMA [None]
  - TACHYPHRENIA [None]
  - PROCEDURAL PAIN [None]
  - FOOD ALLERGY [None]
  - HALLUCINATION, VISUAL [None]
  - POST PROCEDURAL HAEMORRHAGE [None]
